FAERS Safety Report 17748755 (Version 1)
Quarter: 2020Q2

REPORT INFORMATION
  Report Type: Spontaneous
  Country: BR (occurrence: BR)
  Receive Date: 20200506
  Receipt Date: 20200506
  Transmission Date: 20200714
  Serious: Yes (Other)
  Sender: FDA-Public Use
  Company Number: BR-B.I. PHARMACEUTICALS,INC./RIDGEFIELD-2020-BI-022461

PATIENT
  Age: 7 Year
  Sex: Male
  Weight: 31 kg

DRUGS (8)
  1. ATENSINA [Suspect]
     Active Substance: CLONIDINE
     Indication: TIC
     Route: 048
     Dates: start: 20200131, end: 20200202
  2. MELATONINA [Concomitant]
     Active Substance: MELATONIN
     Indication: PRODUCT USED FOR UNKNOWN INDICATION
     Dosage: FORM STRENGTH: 5MG/20ML
     Route: 048
     Dates: start: 20200203, end: 20200207
  3. ATENSINA [Suspect]
     Active Substance: CLONIDINE
     Route: 048
     Dates: start: 20200204, end: 20200204
  4. ATENSINA [Suspect]
     Active Substance: CLONIDINE
     Route: 048
     Dates: start: 20200204
  5. CLENIL [BECLOMETASONE DIPROPIONATE] [Concomitant]
     Indication: PRODUCT USED FOR UNKNOWN INDICATION
     Route: 065
  6. NEOZINE [LEVOMEPROMAZINE] [Concomitant]
     Indication: PRODUCT USED FOR UNKNOWN INDICATION
     Dosage: FORM STRENGTH: 40MG/ML; 3 DROPS
     Route: 048
     Dates: start: 20200203, end: 20200207
  7. NOVALGINA [Concomitant]
     Active Substance: METAMIZOLE SODIUM
     Indication: PRODUCT USED FOR UNKNOWN INDICATION
     Dosage: FORM STRENGTH: 50MG/ML
     Route: 048
     Dates: start: 20200203, end: 20200303
  8. ATENSINA [Suspect]
     Active Substance: CLONIDINE
     Indication: MUSCLE SPASMS
     Route: 048
     Dates: start: 20200203, end: 20200203

REACTIONS (9)
  - Product use in unapproved indication [Not Recovered/Not Resolved]
  - Somnolence [Recovered/Resolved]
  - Pallor [Recovered/Resolved]
  - Tension headache [Recovered/Resolved]
  - Malaise [Recovered/Resolved]
  - Product administered to patient of inappropriate age [Not Recovered/Not Resolved]
  - Hypotension [Recovered/Resolved]
  - Vertigo [Recovered/Resolved]
  - Hyperhidrosis [Recovered/Resolved]

NARRATIVE: CASE EVENT DATE: 20200131
